FAERS Safety Report 11590240 (Version 1)
Quarter: 2015Q4

REPORT INFORMATION
  Report Type: Spontaneous
  Country: US (occurrence: US)
  Receive Date: 20151002
  Receipt Date: 20151002
  Transmission Date: 20160304
  Serious: Yes (Other)
  Sender: FDA-Public Use
  Company Number: US-ASTRAZENECA-2015SE92644

PATIENT
  Sex: Female
  Weight: 64.4 kg

DRUGS (1)
  1. FARXIGA [Suspect]
     Active Substance: DAPAGLIFLOZIN PROPANEDIOL
     Indication: TYPE 2 DIABETES MELLITUS
     Route: 048
     Dates: start: 20150902, end: 201509

REACTIONS (7)
  - Movement disorder [Unknown]
  - Hyperadrenalism [Unknown]
  - Feeling abnormal [Unknown]
  - Thinking abnormal [Unknown]
  - Dizziness [Recovered/Resolved]
  - Blood glucose decreased [Unknown]
  - Blood pressure decreased [Unknown]
